FAERS Safety Report 22636737 (Version 1)
Quarter: 2023Q2

REPORT INFORMATION
  Report Type: Spontaneous
  Country: US (occurrence: None)
  Receive Date: 20230621
  Receipt Date: 20230621
  Transmission Date: 20230722
  Serious: No
  Sender: FDA-Public Use
  Company Number: None

PATIENT
  Sex: Female

DRUGS (7)
  1. INLYTA [Suspect]
     Active Substance: AXITINIB
     Indication: Renal cancer
     Dosage: FREQUENCY : DAILY;?
     Route: 048
  2. CELEBREX [Concomitant]
     Active Substance: CELECOXIB
  3. VITAMIN B12 [Concomitant]
     Active Substance: CYANOCOBALAMIN
  4. LOPRESSOR [Concomitant]
     Active Substance: METOPROLOL TARTRATE
  5. TUMERIC COMPLEX [Concomitant]
  6. SALONPAS PAIN RELIEF [Concomitant]
     Active Substance: MENTHOL\METHYL SALICYLATE
  7. TRAMADOL [Concomitant]

REACTIONS (1)
  - Disease progression [None]
